FAERS Safety Report 7917777-0 (Version None)
Quarter: 2011Q4

REPORT INFORMATION
  Report Type: 
  Country: None (occurrence: None)
  Receive Date: 20111116
  Receipt Date: 20111114
  Transmission Date: 20120403
  Serious: Yes (Other)
  Sender: FDA-Public Use
  Company Number: FR-ROCHE-1013544

PATIENT
  Age: 43 Year
  Sex: Male

DRUGS (17)
  1. IRINOTECAN HCL [Suspect]
     Dates: start: 20090201
  2. FLUOROURACIL [Suspect]
     Dates: start: 20070801
  3. FLUOROURACIL [Suspect]
     Dates: start: 20090201
  4. BEVACIZUMAB [Suspect]
     Dates: start: 20080301
  5. BEVACIZUMAB [Suspect]
     Dates: start: 20090201
  6. LEUCOVORIN CALCIUM [Suspect]
     Indication: COLORECTAL CANCER METASTATIC
     Dates: start: 20060901, end: 20070401
  7. FLUOROURACIL [Suspect]
     Dates: start: 20080301
  8. IRINOTECAN HCL [Suspect]
     Indication: COLORECTAL CANCER METASTATIC
     Dates: start: 20060901, end: 20070401
  9. CETUXIMAB [Concomitant]
     Indication: COLORECTAL CANCER METASTATIC
  10. BEVACIZUMAB [Suspect]
     Dates: start: 20070801, end: 20080301
  11. IRINOTECAN HCL [Suspect]
     Dates: start: 20070801
  12. BEVACIZUMAB [Suspect]
     Indication: COLORECTAL CANCER METASTATIC
     Dates: start: 20060901, end: 20070401
  13. LEUCOVORIN CALCIUM [Suspect]
     Dates: start: 20080301
  14. IRINOTECAN HCL [Suspect]
     Dates: start: 20080301
  15. LEUCOVORIN CALCIUM [Suspect]
     Dates: start: 20070801
  16. LEUCOVORIN CALCIUM [Suspect]
     Dates: start: 20090201
  17. FLUOROURACIL [Suspect]
     Indication: COLORECTAL CANCER METASTATIC
     Dates: start: 20060901, end: 20070401

REACTIONS (1)
  - CLUBBING [None]
